FAERS Safety Report 9701190 (Version 2)
Quarter: 2015Q3

REPORT INFORMATION
  Report Type: Spontaneous
  Country: US (occurrence: US)
  Receive Date: 20131121
  Receipt Date: 20150803
  Transmission Date: 20151125
  Serious: No
  Sender: FDA-Public Use
  Company Number: US-GILEAD-2008-0016002

PATIENT
  Age: 64 Year
  Sex: Female

DRUGS (12)
  1. PEPTO-BISMOL [Concomitant]
     Active Substance: BISMUTH SUBSALICYLATE\CALCIUM CARBONATE
  2. LETAIRIS [Suspect]
     Active Substance: AMBRISENTAN
     Route: 048
     Dates: start: 20080123, end: 20080218
  3. LANOXIN [Concomitant]
     Active Substance: DIGOXIN
  4. VIAGRA [Concomitant]
     Active Substance: SILDENAFIL CITRATE
  5. TYLENOL [Concomitant]
     Active Substance: ACETAMINOPHEN
  6. PEPCID [Concomitant]
     Active Substance: FAMOTIDINE
  7. LASIX [Concomitant]
     Active Substance: FUROSEMIDE
  8. LETAIRIS [Suspect]
     Active Substance: AMBRISENTAN
     Indication: PULMONARY HYPERTENSION
     Route: 048
     Dates: start: 20080404
  9. PROMETHAZINE [Concomitant]
     Active Substance: PROMETHAZINE\PROMETHAZINE HYDROCHLORIDE
  10. KCL [Concomitant]
     Active Substance: POTASSIUM CHLORIDE
  11. ATIVAN [Concomitant]
     Active Substance: LORAZEPAM
  12. ALPHAGAN P [Concomitant]
     Active Substance: BRIMONIDINE TARTRATE

REACTIONS (1)
  - Diarrhoea [Not Recovered/Not Resolved]
